FAERS Safety Report 12273721 (Version 1)
Quarter: 2016Q2

REPORT INFORMATION
  Report Type: Report from Study
  Country: US (occurrence: US)
  Receive Date: 20160415
  Receipt Date: 20160415
  Transmission Date: 20160815
  Serious: Yes (Other)
  Sender: FDA-Public Use
  Company Number: US-ABBVIE-16K-163-1601542-00

PATIENT
  Age: 79 Year
  Sex: Female

DRUGS (1)
  1. HUMIRA [Suspect]
     Active Substance: ADALIMUMAB
     Indication: RHEUMATOID ARTHRITIS
     Route: 058
     Dates: start: 20160202

REACTIONS (5)
  - Nasopharyngitis [Unknown]
  - Pain [Unknown]
  - Activities of daily living impaired [Unknown]
  - Bedridden [Unknown]
  - Wheelchair user [Unknown]

NARRATIVE: CASE EVENT DATE: 2016
